FAERS Safety Report 23332647 (Version 11)
Quarter: 2024Q4

REPORT INFORMATION
  Report Type: Spontaneous
  Country: JP (occurrence: JP)
  Receive Date: 20231222
  Receipt Date: 20241206
  Transmission Date: 20250115
  Serious: Yes (Life-Threatening, Hospitalization, Other)
  Sender: MERCK
  Company Number: JP-MSD-2311JPN002094J

PATIENT
  Age: 62 Year
  Sex: Male

DRUGS (2)
  1. KEYTRUDA [Suspect]
     Active Substance: PEMBROLIZUMAB
     Indication: Renal cell carcinoma stage IV
     Dosage: 200 MILLIGRAM, Q3W
     Route: 041
     Dates: start: 20230925, end: 20230925
  2. LENVATINIB MESYLATE [Suspect]
     Active Substance: LENVATINIB MESYLATE
     Indication: Renal cell carcinoma stage IV
     Dosage: 20 MILLIGRAM
     Route: 048
     Dates: start: 20230925, end: 20230925

REACTIONS (5)
  - Vocal cord paresis [Recovering/Resolving]
  - Myocardial infarction [Unknown]
  - Immune-mediated myocarditis [Recovering/Resolving]
  - Immune-mediated myasthenia gravis [Not Recovered/Not Resolved]
  - Immune-mediated myositis [Unknown]

NARRATIVE: CASE EVENT DATE: 20230101
